FAERS Safety Report 6192457-3 (Version None)
Quarter: 2009Q2

REPORT INFORMATION
  Report Type: 
  Country: None (occurrence: None)
  Receive Date: 20090518
  Receipt Date: 20071016
  Transmission Date: 20091009
  Serious: Yes (Hospitalization)
  Sender: FDA-Public Use
  Company Number: US-ASTRAZENECA-2006UW22593

PATIENT
  Age: 7015 Day
  Sex: Male
  Weight: 70.3 kg

DRUGS (18)
  1. SEROQUEL [Suspect]
     Indication: DEPRESSION
     Route: 048
     Dates: start: 20030101, end: 20060106
  2. SEROQUEL [Suspect]
     Indication: BIPOLAR DISORDER
     Route: 048
     Dates: start: 20030101, end: 20060106
  3. SEROQUEL [Suspect]
     Indication: SCHIZOAFFECTIVE DISORDER
     Route: 048
     Dates: start: 20030101, end: 20060106
  4. SEROQUEL [Suspect]
     Dosage: 100-300 MG
     Route: 048
     Dates: start: 20030518
  5. SEROQUEL [Suspect]
     Dosage: 100-300 MG
     Route: 048
     Dates: start: 20030518
  6. SEROQUEL [Suspect]
     Dosage: 100-300 MG
     Route: 048
     Dates: start: 20030518
  7. GEODON [Concomitant]
     Route: 065
  8. RISPERDAL [Concomitant]
     Route: 065
  9. ALBUTEROL [Concomitant]
     Route: 048
  10. VISTARIL [Concomitant]
     Route: 048
  11. ZYPREXA [Concomitant]
     Route: 048
  12. ZOLOFT [Concomitant]
     Route: 048
  13. TRAZODONE HCL [Concomitant]
     Route: 048
  14. CYCLOBENZAPRINE [Concomitant]
     Route: 048
  15. CYMBALTA [Concomitant]
     Route: 048
  16. FLUOXETINE HCL [Concomitant]
     Route: 048
  17. ABILIFY [Concomitant]
     Route: 048
  18. DEPAKOTE [Concomitant]
     Route: 048

REACTIONS (11)
  - BRONCHITIS [None]
  - CONTUSION [None]
  - DIABETES MELLITUS [None]
  - DRUG ABUSE [None]
  - FACTITIOUS DISORDER [None]
  - MUSCULOSKELETAL PAIN [None]
  - PAIN IN EXTREMITY [None]
  - PSYCHOTIC DISORDER [None]
  - SCHIZOAFFECTIVE DISORDER [None]
  - SEASONAL ALLERGY [None]
  - SUBSTANCE ABUSE [None]
